FAERS Safety Report 12311251 (Version 2)
Quarter: 2016Q2

REPORT INFORMATION
  Report Type: Spontaneous
  Country: FI (occurrence: FI)
  Receive Date: 20160427
  Receipt Date: 20160607
  Transmission Date: 20160815
  Serious: Yes (Other)
  Sender: FDA-Public Use
  Company Number: FI-BAYER-2016-080098

PATIENT
  Age: 36 Year
  Sex: Female

DRUGS (6)
  1. TRIPTYL [Suspect]
     Active Substance: AMITRIPTYLINE HYDROCHLORIDE
     Dosage: 20 MG, UNK
  2. TRADOLAN [Suspect]
     Active Substance: TRAMADOL
     Indication: NEURALGIA
     Dosage: 75 MG, UNK
     Dates: start: 20160317
  3. TRADOLAN [Suspect]
     Active Substance: TRAMADOL
     Indication: NEURALGIA
     Dosage: 150 MG, UNK
     Dates: start: 20160317, end: 201604
  4. TRIPTYL [Suspect]
     Active Substance: AMITRIPTYLINE HYDROCHLORIDE
     Dosage: 10 MG, UNK
     Dates: start: 201603
  5. MIRENA [Suspect]
     Active Substance: LEVONORGESTREL
     Dosage: 20 MCG/24HR, CONT
     Route: 015
     Dates: start: 2009, end: 201406
  6. MIRENA [Suspect]
     Active Substance: LEVONORGESTREL
     Dosage: 20 MCG/24HR, CONT
     Route: 015
     Dates: start: 201406

REACTIONS (28)
  - Vaginal haemorrhage [Recovered/Resolved]
  - Vertigo [Not Recovered/Not Resolved]
  - Insomnia [Recovering/Resolving]
  - Dysuria [None]
  - Photopsia [Not Recovered/Not Resolved]
  - Autoimmune disorder [Not Recovered/Not Resolved]
  - Procedural pain [Recovered/Resolved]
  - Visual impairment [Not Recovered/Not Resolved]
  - Peripheral swelling [Recovering/Resolving]
  - Fatigue [Recovered/Resolved]
  - Arthralgia [Not Recovered/Not Resolved]
  - Ageusia [None]
  - Loss of consciousness [None]
  - Chills [Recovering/Resolving]
  - Unevaluable event [None]
  - Gait disturbance [Not Recovered/Not Resolved]
  - Thoracic outlet syndrome [Not Recovered/Not Resolved]
  - Hypoaesthesia [Not Recovered/Not Resolved]
  - Vertigo positional [Not Recovered/Not Resolved]
  - Ear disorder [None]
  - Feeling cold [Not Recovered/Not Resolved]
  - Night sweats [Recovering/Resolving]
  - Visual field defect [Not Recovered/Not Resolved]
  - Vomiting [None]
  - Pituitary tumour [Not Recovered/Not Resolved]
  - Blood follicle stimulating hormone increased [Recovering/Resolving]
  - Swelling [Not Recovered/Not Resolved]
  - Malaise [None]

NARRATIVE: CASE EVENT DATE: 2014
